FAERS Safety Report 10007670 (Version 1)
Quarter: 2014Q1

REPORT INFORMATION
  Report Type: Spontaneous
  Country: US (occurrence: US)
  Receive Date: 20140313
  Receipt Date: 20140313
  Transmission Date: 20141002
  Serious: No
  Sender: FDA-Public Use
  Company Number: US-GILEAD-2012-0064886

PATIENT
  Age: 54 Year
  Sex: Female

DRUGS (12)
  1. LETAIRIS [Suspect]
     Indication: PRODUCT USED FOR UNKNOWN INDICATION
     Dosage: 5 MG, QD
     Route: 048
     Dates: start: 20120302
  2. COLESTIPOL [Concomitant]
  3. METOPROLOL SUCCINATE [Concomitant]
  4. CALCIUM [Concomitant]
  5. FISH OIL [Concomitant]
  6. LAMICTAL [Concomitant]
  7. NIFEDIPINE [Concomitant]
  8. DIOVAN [Concomitant]
  9. NEXIUM                             /01479302/ [Concomitant]
  10. PREDNISONE [Concomitant]
  11. RANITIDINE [Concomitant]
  12. HYDROCHLOROTHIAZIDE [Concomitant]

REACTIONS (1)
  - Anaemia [Unknown]
